FAERS Safety Report 14774237 (Version 5)
Quarter: 2018Q4

REPORT INFORMATION
  Report Type: Spontaneous
  Country: CA (occurrence: CA)
  Receive Date: 20180418
  Receipt Date: 20181010
  Transmission Date: 20190204
  Serious: Yes (Other)
  Sender: FDA-Public Use
  Company Number: CA-CELLTRION INC.-2017CA007496

PATIENT

DRUGS (14)
  1. INFLECTRA [Suspect]
     Active Substance: INFLIXIMAB-DYYB
     Dosage: 350 MG CYCLIC, EVERY 8 WEEKS
     Route: 042
     Dates: start: 20171221
  2. INFLECTRA [Suspect]
     Active Substance: INFLIXIMAB-DYYB
     Dosage: 350 MG CYCLIC, EVERY 8 WEEKS
     Route: 042
     Dates: start: 20171221
  3. INFLECTRA [Suspect]
     Active Substance: INFLIXIMAB-DYYB
     Dosage: 350 MG CYCLIC, EVERY 8 WEEKS
     Route: 042
     Dates: start: 20180409
  4. NAPROXEN. [Concomitant]
     Active Substance: NAPROXEN
     Dosage: 500 MG, DAILY
     Dates: start: 2014
  5. INFLECTRA [Suspect]
     Active Substance: INFLIXIMAB-DYYB
     Dosage: 350 MG CYCLIC, EVERY 8 WEEKS
     Route: 042
     Dates: start: 20180212
  6. INFLECTRA [Suspect]
     Active Substance: INFLIXIMAB-DYYB
     Dosage: 350 MG CYCLIC, EVERY 8 WEEKS
     Route: 042
     Dates: start: 20180924
  7. INFLECTRA [Suspect]
     Active Substance: INFLIXIMAB-DYYB
     Indication: ANKYLOSING SPONDYLITIS
     Dosage: 266 MG, CYCLIC  THEN EVERY 8 WEEKS
     Route: 042
     Dates: start: 20160302, end: 20170609
  8. COVERSYL                           /00790702/ [Concomitant]
     Active Substance: PERINDOPRIL
     Dosage: 4 MG, DAILY
  9. INFLECTRA [Suspect]
     Active Substance: INFLIXIMAB-DYYB
     Dosage: 288 MG,CYCLIC THEN EVERY 8 WEEKS
     Route: 042
     Dates: start: 20170814, end: 20171011
  10. INFLECTRA [Suspect]
     Active Substance: INFLIXIMAB-DYYB
     Dosage: 350 MG CYCLIC, EVERY 8 WEEKS
     Route: 042
     Dates: start: 20180605
  11. INFLECTRA [Suspect]
     Active Substance: INFLIXIMAB-DYYB
     Dosage: 350 MG CYCLIC, EVERY 8 WEEKS
     Route: 042
     Dates: start: 20180803
  12. METHOTREXATE SODIUM. [Suspect]
     Active Substance: METHOTREXATE SODIUM
     Indication: PRODUCT USED FOR UNKNOWN INDICATION
     Dosage: 20 MG, 1/WEEK
     Route: 048
     Dates: start: 2014
  13. SULFASALAZINE. [Suspect]
     Active Substance: SULFASALAZINE
     Indication: PRODUCT USED FOR UNKNOWN INDICATION
     Dosage: 500 MG, BID
     Route: 065
     Dates: start: 2015
  14. BACLOFEN. [Concomitant]
     Active Substance: BACLOFEN
     Dosage: 10 MG, UNK

REACTIONS (10)
  - Fatigue [Not Recovered/Not Resolved]
  - Weight increased [Unknown]
  - Inappropriate schedule of product administration [Unknown]
  - Arthralgia [Recovered/Resolved]
  - Rectal haemorrhage [Unknown]
  - Product use issue [Unknown]
  - Blood pressure increased [Unknown]
  - Joint swelling [Recovered/Resolved]
  - Blood pressure fluctuation [Unknown]
  - Oedema peripheral [Unknown]

NARRATIVE: CASE EVENT DATE: 20170609
